FAERS Safety Report 25920914 (Version 1)
Quarter: 2025Q4

REPORT INFORMATION
  Report Type: Spontaneous
  Country: US (occurrence: US)
  Receive Date: 20251014
  Receipt Date: 20251014
  Transmission Date: 20260118
  Serious: No
  Sender: GENMAB
  Company Number: US-GENMAB-2025-02513

PATIENT

DRUGS (1)
  1. EPKINLY [Suspect]
     Active Substance: EPCORITAMAB-BYSP
     Indication: Follicular lymphoma refractory
     Dosage: UNK
     Route: 065

REACTIONS (1)
  - Infection [Unknown]
